FAERS Safety Report 9982053 (Version 1)
Quarter: 2014Q1

REPORT INFORMATION
  Report Type: Spontaneous
  Country: US (occurrence: None)
  Receive Date: 20140127
  Receipt Date: 20140127
  Transmission Date: 20141002
  Serious: Yes (Other)
  Sender: FDA-Public Use
  Company Number: 1227954

PATIENT
  Age: 59 Year
  Sex: Female

DRUGS (1)
  1. RITUXAN [Suspect]
     Indication: RHEUMATOID ARTHRITIS

REACTIONS (11)
  - Pain in extremity [None]
  - Herpes virus infection [None]
  - Nipple exudate bloody [None]
  - Breast pain [None]
  - Axillary pain [None]
  - Breast disorder [None]
  - Nausea [None]
  - Local swelling [None]
  - Local swelling [None]
  - Haemorrhoidal haemorrhage [None]
  - Arthralgia [None]
